FAERS Safety Report 12660250 (Version 1)
Quarter: 2016Q3

REPORT INFORMATION
  Report Type: Spontaneous
  Country: US (occurrence: US)
  Receive Date: 20160817
  Receipt Date: 20160817
  Transmission Date: 20161109
  Serious: Yes (Other)
  Sender: FDA-Public Use
  Company Number: US-BAXTER-2016BAX042507

PATIENT
  Sex: Female
  Weight: 76.66 kg

DRUGS (11)
  1. ARIMIDEX [Suspect]
     Active Substance: ANASTROZOLE
     Indication: BREAST CANCER
     Route: 065
     Dates: start: 200212, end: 200712
  2. AVASTIN [Suspect]
     Active Substance: BEVACIZUMAB
     Indication: BREAST CANCER
     Route: 065
  3. AROMASIN [Suspect]
     Active Substance: EXEMESTANE
     Indication: BREAST CANCER
     Route: 065
     Dates: start: 201401, end: 201405
  4. AFINITOR [Suspect]
     Active Substance: EVEROLIMUS
     Indication: BREAST CANCER
     Dosage: FOR ONE MONTH
     Route: 065
     Dates: start: 201401
  5. TAMOXIFEN [Suspect]
     Active Substance: TAMOXIFEN
     Indication: BREAST CANCER
     Route: 065
     Dates: start: 199701, end: 200212
  6. CYCLOPHOSPHAMIDE FOR INJECTION, USP [Suspect]
     Active Substance: CYCLOPHOSPHAMIDE
     Indication: BREAST CANCER
     Route: 065
     Dates: start: 1997
  7. ADRIAMYCIN [Suspect]
     Active Substance: DOXORUBICIN HYDROCHLORIDE
     Indication: BREAST CANCER
     Route: 065
     Dates: start: 1997
  8. XELODA [Suspect]
     Active Substance: CAPECITABINE
     Indication: BREAST CANCER
     Dosage: 2 TABLETS,END DATE NOT REPORTED, REPORTED AS STOPPED AS WELL
     Route: 065
     Dates: start: 201501
  9. FEMARA [Suspect]
     Active Substance: LETROZOLE
     Indication: BREAST CANCER
     Route: 065
     Dates: start: 201106, end: 201110
  10. FASLODEX [Suspect]
     Active Substance: FULVESTRANT
     Indication: BREAST CANCER
     Route: 030
     Dates: start: 201111, end: 201312
  11. AFINITOR [Suspect]
     Active Substance: EVEROLIMUS
     Dosage: DOSE REDUCED FOR THREE MONTHS
     Route: 065
     Dates: end: 201405

REACTIONS (7)
  - Cardiomyopathy [Unknown]
  - Depression [Unknown]
  - Disease progression [Unknown]
  - Cardiac failure congestive [Unknown]
  - Pain [Unknown]
  - Blood pressure abnormal [Unknown]
  - Drug ineffective [Unknown]
